FAERS Safety Report 6152649-6 (Version None)
Quarter: 2009Q2

REPORT INFORMATION
  Report Type: 
  Country: None (occurrence: None)
  Receive Date: 20090408
  Receipt Date: 20090212
  Transmission Date: 20091009
  Serious: Yes (Death, Hospitalization)
  Sender: FDA-Public Use
  Company Number: F03200900006

PATIENT
  Age: 52 Year
  Sex: Male
  Weight: 53.0709 kg

DRUGS (5)
  1. OXALIPLATIN [Suspect]
     Indication: METASTATIC GASTRIC CANCER
     Dosage: 220 MG Q3W - INTRAVENOUS NOS
     Route: 042
     Dates: start: 20090127
  2. CAPECITABINE - UNKNOWN - UNIT DOSE : UNKNOWN [Suspect]
     Indication: METASTATIC GASTRIC CANCER
     Dosage: 1500 MG BID - ORAL
     Route: 048
     Dates: start: 20090129
  3. BEVACIZUMAB - SOLUTION - UNIT DOSE : UNKNOWN [Suspect]
     Indication: METASTATIC GASTRIC CANCER
     Dosage: 795 MG Q3W - INTRAVENOUS NOS
     Route: 042
     Dates: start: 20090127
  4. MORPHINE [Concomitant]
  5. TYLENOL W/ CODEINE [Concomitant]

REACTIONS (13)
  - ABDOMINAL PAIN [None]
  - ANOREXIA [None]
  - BACTERIA URINE [None]
  - BLOOD POTASSIUM DECREASED [None]
  - DISEASE PROGRESSION [None]
  - HAEMATOCRIT DECREASED [None]
  - HAEMOGLOBIN DECREASED [None]
  - NAUSEA [None]
  - PROTEIN URINE PRESENT [None]
  - SPECIFIC GRAVITY URINE INCREASED [None]
  - URINE ABNORMALITY [None]
  - URINE LEUKOCYTE ESTERASE POSITIVE [None]
  - WEIGHT DECREASED [None]
